FAERS Safety Report 9439075 (Version 1)
Quarter: 2013Q3

REPORT INFORMATION
  Report Type: Report from Study
  Country: US (occurrence: US)
  Receive Date: 20130802
  Receipt Date: 20130802
  Transmission Date: 20140515
  Serious: Yes (Other)
  Sender: FDA-Public Use
  Company Number: US-PFIZER INC-2013216072

PATIENT
  Age: 10 Year
  Sex: 0

DRUGS (5)
  1. IRINOTECAN HCL [Suspect]
     Indication: EPENDYMOMA
     Dosage: 90 MG/M2/DAY, ON DAYS 1-5, EVERY 3 WEEKS
     Route: 048
  2. TEMOZOLOMIDE [Suspect]
     Indication: EPENDYMOMA
     Dosage: 150 MG/M2/DAY,(ON DAY 1-5, EVERY 3 WEEKS
     Route: 048
  3. VINCRISTINE [Suspect]
     Indication: EPENDYMOMA
     Dosage: 1.5 MG/M2, OVER 1 MINUTE ON DAY , EVERY 3 WEEKS
     Route: 042
  4. BEVACIZUMAB [Suspect]
     Indication: EPENDYMOMA
     Dosage: 15 MG/KG, OVER 90 MINUTES ON DAY 1, EVERY 3 WEEKS
  5. CEFIXIME [Concomitant]
     Indication: PROPHYLAXIS AGAINST DIARRHOEA
     Dosage: 8 MG/KG, DAILY

REACTIONS (1)
  - Neuropathy peripheral [Unknown]
